FAERS Safety Report 5140108-9 (Version None)
Quarter: 2006Q4

REPORT INFORMATION
  Report Type: 
  Country: None (occurrence: None)
  Receive Date: 20061024
  Receipt Date: 20061010
  Transmission Date: 20070319
  Serious: Yes (Hospitalization, Other)
  Sender: FDA-Public Use
  Company Number: US200610001625

PATIENT
  Sex: Female

DRUGS (3)
  1. HUMULIN R [Suspect]
     Indication: DIABETES MELLITUS
  2. HUMULIN N [Suspect]
     Indication: DIABETES MELLITUS
     Dosage: 10 UNITS IN AM, 6 UNITS IN PM,
  3. HUMALOG [Suspect]
     Indication: DIABETES MELLITUS
     Dosage: 40 U, 4/D,
     Dates: start: 20050101

REACTIONS (7)
  - ARTERIAL OCCLUSIVE DISEASE [None]
  - FALL [None]
  - INJECTION SITE INFECTION [None]
  - JOINT INJURY [None]
  - LOSS OF CONSCIOUSNESS [None]
  - MYOCARDIAL INFARCTION [None]
  - VISUAL ACUITY REDUCED [None]
